FAERS Safety Report 22911023 (Version 9)
Quarter: 2025Q4

REPORT INFORMATION
  Report Type: Spontaneous
  Country: EU (occurrence: EU)
  Receive Date: 20230906
  Receipt Date: 20251218
  Transmission Date: 20260117
  Serious: Yes (Life-Threatening, Hospitalization, Other)
  Sender: CELLTRION
  Company Number: EU-CELLTRION INC.-2023CZ017380

PATIENT

DRUGS (47)
  1. RITUXIMAB [Suspect]
     Active Substance: RITUXIMAB
     Indication: Follicular lymphoma stage IV
     Dosage: CYCLE 1 (DAYS 1, 8, 15, AND 22) AND ON DAY 1 OF EACH 28-DAY CYCLE,
     Route: 042
  2. RITUXIMAB [Suspect]
     Active Substance: RITUXIMAB
     Indication: Lymphadenopathy
     Dosage: 6 CYCLES OF R-CHOP (RITUXIMAB, CYCLOPHOSPHAMIDE, DOXORUBICIN, VINCRISTINE, PREDNISONE)
     Route: 042
  3. RITUXIMAB [Suspect]
     Active Substance: RITUXIMAB
     Indication: Follicular lymphoma
     Dosage: MAINTENANCE TREATMENT OF RITUXIMAB ADMINISTERED ONCE EVERY 2 MONTHS
  4. RITUXIMAB [Suspect]
     Active Substance: RITUXIMAB
     Dosage: R2 TREATMENT; 375 MG/M2 INTRAVENOUSLY EVERY WEEK IN CYCLE 1 (DAYS 1, 8, 15 AND 22) AND DAY 1 OF EACH
     Route: 042
  5. RITUXIMAB [Suspect]
     Active Substance: RITUXIMAB
     Dosage: MONOTHERAPY
  6. RITUXIMAB [Suspect]
     Active Substance: RITUXIMAB
     Dosage: 375 MG/M2 INTRAVENOUSLY EVERY WEEK IN THE 1ST CYCLE (1ST, 8TH, 15TH AND 22ND DAY) AND DAY 1 OF EACH
     Route: 042
  7. RITUXIMAB [Suspect]
     Active Substance: RITUXIMAB
     Dosage: UNK
     Route: 065
  8. CYTOSINE [Suspect]
     Active Substance: CYTOSINE
     Indication: Follicular lymphoma
     Dosage: UNK
     Route: 065
  9. DOXORUBICIN HYDROCHLORIDE [Suspect]
     Active Substance: DOXORUBICIN HYDROCHLORIDE
     Indication: Lymphadenopathy
     Dosage: UNK
     Route: 065
  10. LENALIDOMIDE [Suspect]
     Active Substance: LENALIDOMIDE
     Indication: Follicular lymphoma stage IV
     Dosage: 1.-21. DAY OF 28 DAY CYCLE
     Route: 048
  11. LENALIDOMIDE [Suspect]
     Active Substance: LENALIDOMIDE
     Indication: Lymphadenopathy
     Dosage: ONCE A DAY ON DAYS 1-21 OF THE 28-DAY CYCLE
     Route: 048
  12. LENALIDOMIDE [Suspect]
     Active Substance: LENALIDOMIDE
     Indication: Follicular lymphoma
     Dosage: UNK
     Route: 065
  13. LENALIDOMIDE [Suspect]
     Active Substance: LENALIDOMIDE
     Indication: Follicular lymphoma stage IV
     Dosage: 20 MG EVERY 1.33 DAYS
     Route: 048
  14. LENALIDOMIDE [Suspect]
     Active Substance: LENALIDOMIDE
     Indication: Lymphadenopathy
     Dosage: ON DAYS 1-21 OF THE 28-DAY CYCLE.
     Route: 048
  15. BENDAMUSTINE [Concomitant]
     Active Substance: BENDAMUSTINE
     Indication: Follicular lymphoma stage I
     Dosage: 2 CYCLES, 70 MG/M2, CYCLIC
  16. BENDAMUSTINE [Concomitant]
     Active Substance: BENDAMUSTINE
     Indication: Follicular lymphoma
     Dosage: 70 MG/M^2, LOW DOSE
     Route: 065
  17. CARBOPLATIN [Concomitant]
     Active Substance: CARBOPLATIN
     Indication: Follicular lymphoma
     Dosage: ICE CHEMOTHERAPY; RESCUE TREATMENT
  18. CARBOPLATIN [Concomitant]
     Active Substance: CARBOPLATIN
     Dosage: UNK
     Route: 065
  19. CISPLATIN [Concomitant]
     Active Substance: CISPLATIN
     Indication: Follicular lymphoma
     Dosage: GDP SALVAGE REGIMEN
  20. CISPLATIN [Concomitant]
     Active Substance: CISPLATIN
     Dosage: DHAP REGIMEN (A TOTAL OF THREE CYCLES WERE ADMINISTERED)
  21. CISPLATIN [Concomitant]
     Active Substance: CISPLATIN
     Dosage: UNK
     Route: 065
  22. CYCLOPHOSPHAMIDE [Concomitant]
     Active Substance: CYCLOPHOSPHAMIDE
     Indication: Follicular lymphoma
     Dosage: 6 CYCLES OF R-CHOP
  23. CYCLOPHOSPHAMIDE [Concomitant]
     Active Substance: CYCLOPHOSPHAMIDE
     Indication: Lymphadenopathy
     Dosage: UNK
     Route: 065
  24. CYTARABINE [Concomitant]
     Active Substance: CYTARABINE
     Indication: Follicular lymphoma
     Dosage: DHAP REGIMEN (A TOTAL OF THREE CYCLES WERE ADMINISTERED)
  25. DEXAMETHASONE [Concomitant]
     Active Substance: DEXAMETHASONE
     Indication: Follicular lymphoma
     Dosage: GDP SALVAGE REGIMEN
  26. DEXAMETHASONE [Concomitant]
     Active Substance: DEXAMETHASONE
     Dosage: DHAP REGIMEN
  27. DEXAMETHASONE [Concomitant]
     Active Substance: DEXAMETHASONE
     Dosage: THREE CYCLES OF FND (FLUDARABINE, MITOXANTRONE, DEXAMETHASONE)
  28. DEXAMETHASONE [Concomitant]
     Active Substance: DEXAMETHASONE
     Dosage: FOUR MORE CYCLES OF ETOPOSIDE WITH DEXAMETHASONE
  29. DEXAMETHASONE [Concomitant]
     Active Substance: DEXAMETHASONE
     Dosage: UNK
     Route: 065
  30. DOXORUBICIN [Concomitant]
     Active Substance: DOXORUBICIN
     Indication: Follicular lymphoma
     Dosage: 6 CYCLES OF R-CHOP
  31. ETOPOSIDE [Concomitant]
     Active Substance: ETOPOSIDE
     Indication: Follicular lymphoma
     Dosage: ICE CHEMOTHERAPY; RESCUE TREATMENT
  32. ETOPOSIDE [Concomitant]
     Active Substance: ETOPOSIDE
     Dosage: FOUR MORE CYCLES OF ETOPOSIDE WITH DEXAMETHASONE
  33. ETOPOSIDE [Concomitant]
     Active Substance: ETOPOSIDE
     Dosage: UNK
     Route: 065
  34. FLUDARABINE [Concomitant]
     Active Substance: FLUDARABINE PHOSPHATE
     Indication: Follicular lymphoma
     Dosage: THREE CYCLES OF FND (FLUDARABINE, MITOXANTRONE, DEXAMETHASONE)
  35. FLUDARABINE [Concomitant]
     Active Substance: FLUDARABINE PHOSPHATE
     Dosage: UNK
     Route: 065
  36. GEMCITABINE [Concomitant]
     Active Substance: GEMCITABINE
     Indication: Follicular lymphoma
     Dosage: GDP SALVAGE REGIMEN
  37. GEMCITABINE [Concomitant]
     Active Substance: GEMCITABINE
     Dosage: UNK
     Route: 065
  38. IDELALISIB [Concomitant]
     Active Substance: IDELALISIB
     Indication: Follicular lymphoma
     Dosage: UNK
     Route: 065
  39. IFOSFAMIDE [Concomitant]
     Active Substance: IFOSFAMIDE
     Indication: Follicular lymphoma
     Dosage: ICE CHEMOTHERAPY; RESCUE TREATMENT
  40. IFOSFAMIDE [Concomitant]
     Active Substance: IFOSFAMIDE
     Dosage: UNK
     Route: 065
  41. MITOXANTRONE [Concomitant]
     Active Substance: MITOXANTRONE HYDROCHLORIDE
     Indication: Follicular lymphoma
     Dosage: THREE CYCLES OF FND (FLUDARABINE, MITOXANTRONE, DEXAMETHASONE)
  42. MITOXANTRONE [Concomitant]
     Active Substance: MITOXANTRONE HYDROCHLORIDE
     Dosage: UNK
     Route: 065
  43. PREDNISONE [Concomitant]
     Active Substance: PREDNISONE
     Indication: Follicular lymphoma
     Dosage: 6 CYCLES OF R-CHOP
  44. PREDNISONE [Concomitant]
     Active Substance: PREDNISONE
     Indication: Lymphadenopathy
     Dosage: UNK
     Route: 065
  45. VINCRISTINE [Concomitant]
     Active Substance: VINCRISTINE
     Indication: Follicular lymphoma
     Dosage: 6 CYCLES OF R-CHOP
  46. VINCRISTINE [Concomitant]
     Active Substance: VINCRISTINE
     Indication: Lymphadenopathy
     Dosage: UNK
     Route: 065
  47. VINCRISTINE [Concomitant]
     Active Substance: VINCRISTINE
     Dosage: DHAP REGIMEN (A TOTAL OF THREE CYCLES WERE ADMINISTERED)

REACTIONS (13)
  - Febrile neutropenia [Recovered/Resolved]
  - Disease progression [Unknown]
  - Myelodysplastic syndrome [Recovered/Resolved]
  - Neoplasm progression [Unknown]
  - Haematotoxicity [Unknown]
  - Herpes zoster [Recovered/Resolved]
  - Herpes zoster [Unknown]
  - Thrombocytopenia [Recovered/Resolved]
  - Drug ineffective [Unknown]
  - Therapeutic product effect incomplete [Unknown]
  - Therapy non-responder [Unknown]
  - Intentional product use issue [Unknown]
  - Product use issue [Unknown]
